FAERS Safety Report 26218720 (Version 1)
Quarter: 2025Q4

REPORT INFORMATION
  Report Type: Spontaneous
  Country: US (occurrence: US)
  Receive Date: 20251231
  Receipt Date: 20251231
  Transmission Date: 20260117
  Serious: Yes (Death, Hospitalization)
  Sender: AMGEN
  Company Number: US-AMGEN-USASP2025253244

PATIENT
  Age: 28 Year
  Sex: Female

DRUGS (1)
  1. INFLIXIMAB [Suspect]
     Active Substance: INFLIXIMAB
     Indication: Hidradenitis
     Dosage: UNK
     Route: 065

REACTIONS (5)
  - Shock [Fatal]
  - Meningococcal infection [Unknown]
  - Purpura [Unknown]
  - Multiple organ dysfunction syndrome [Unknown]
  - Off label use [Unknown]
